FAERS Safety Report 16927704 (Version 1)
Quarter: 2019Q4

REPORT INFORMATION
  Report Type: Report from Study
  Country: AT (occurrence: AT)
  Receive Date: 20191016
  Receipt Date: 20191016
  Transmission Date: 20200122
  Serious: Yes (Other)
  Sender: FDA-Public Use
  Company Number: PHHY2015AT027400

PATIENT
  Age: 38 Year
  Sex: Female

DRUGS (3)
  1. VIROPEL [Concomitant]
     Indication: PRODUCT USED FOR UNKNOWN INDICATION
     Dosage: UNK
     Route: 065
     Dates: end: 20160515
  2. GILENYA [Suspect]
     Active Substance: FINGOLIMOD HYDROCHLORIDE
     Indication: MULTIPLE SCLEROSIS
     Dosage: UNK, QD
     Route: 048
     Dates: start: 20141007
  3. NUVARING [Concomitant]
     Active Substance: ETHINYL ESTRADIOL\ETONOGESTREL
     Indication: PRODUCT USED FOR UNKNOWN INDICATION
     Dosage: UNK
     Route: 065
     Dates: end: 20160329

REACTIONS (9)
  - Gamma-glutamyltransferase decreased [Unknown]
  - Sciatica [Recovered/Resolved]
  - Tinnitus [Recovered/Resolved]
  - Influenza like illness [Recovered/Resolved]
  - Lymphocyte count decreased [Unknown]
  - Aphthous ulcer [Recovered/Resolved]
  - Influenza like illness [Recovered/Resolved]
  - Molluscum contagiosum [Unknown]
  - White blood cell count decreased [Unknown]

NARRATIVE: CASE EVENT DATE: 20141022
